FAERS Safety Report 15352979 (Version 1)
Quarter: 2018Q3

REPORT INFORMATION
  Report Type: Spontaneous
  Country: US (occurrence: US)
  Receive Date: 20180905
  Receipt Date: 20180905
  Transmission Date: 20181010
  Serious: Yes (Hospitalization, Disabling, Other)
  Sender: FDA-Public Use
  Company Number: US-JNJFOC-20180842926

PATIENT
  Age: 49 Year
  Sex: Male

DRUGS (1)
  1. INVOKANA [Suspect]
     Active Substance: CANAGLIFLOZIN
     Indication: TYPE 2 DIABETES MELLITUS
     Route: 048
     Dates: start: 20140520

REACTIONS (7)
  - Gangrene [Unknown]
  - Diabetic foot infection [Unknown]
  - Impaired healing [Unknown]
  - Amputation [Unknown]
  - Osteomyelitis acute [Unknown]
  - Calcanectomy [Unknown]
  - Leg amputation [Unknown]

NARRATIVE: CASE EVENT DATE: 20150205
